FAERS Safety Report 4766322-X (Version None)
Quarter: 2005Q3

REPORT INFORMATION
  Report Type: 
  Country: None (occurrence: None)
  Receive Date: 20050909
  Receipt Date: 20050902
  Transmission Date: 20060218
  Serious: No
  Sender: FDA-Public Use
  Company Number: LNL-100164-NL

PATIENT
  Age: 12 Year
  Sex: Female

DRUGS (5)
  1. ROCURONIUM BROMIDE [Suspect]
     Dates: start: 20001019
  2. SUXAMETHONIUM [Suspect]
  3. FENTANYL [Concomitant]
  4. MIDAZOLAM [Concomitant]
  5. METHYLENEDIOXYAMPHETAMINE [Concomitant]

REACTIONS (1)
  - APNOEA [None]
